FAERS Safety Report 9383499 (Version 1)
Quarter: 2013Q3

REPORT INFORMATION
  Report Type: Spontaneous
  Country: US (occurrence: US)
  Receive Date: 20130704
  Receipt Date: 20130704
  Transmission Date: 20140515
  Serious: No
  Sender: FDA-Public Use
  Company Number: US-ASTRAZENECA-2013SE42582

PATIENT
  Age: 59 Year
  Sex: Female

DRUGS (2)
  1. NEXIUM [Suspect]
     Route: 048
  2. OMEPRAZOLE [Suspect]
     Route: 048

REACTIONS (11)
  - Malaise [Unknown]
  - Hyperchlorhydria [Unknown]
  - Gastrooesophageal reflux disease [Unknown]
  - Pain [Unknown]
  - Gait disturbance [Unknown]
  - Hearing impaired [Unknown]
  - Eye disorder [Unknown]
  - Hypertension [Unknown]
  - Asthma [Unknown]
  - Arthritis [Unknown]
  - Hip deformity [Unknown]
